FAERS Safety Report 12710367 (Version 2)
Quarter: 2016Q3

REPORT INFORMATION
  Report Type: Spontaneous
  Country: US (occurrence: US)
  Receive Date: 20160902
  Receipt Date: 20160920
  Transmission Date: 20161109
  Serious: No
  Sender: FDA-Public Use
  Company Number: US-TEVA-688347USA

PATIENT
  Age: 18 Year
  Sex: Female
  Weight: 59.02 kg

DRUGS (3)
  1. PROVIGIL [Suspect]
     Active Substance: MODAFINIL
     Indication: FATIGUE
     Dates: start: 20160816, end: 20160818
  2. PROVIGIL [Suspect]
     Active Substance: MODAFINIL
     Indication: HYPERSOMNIA
  3. LUNESTA [Concomitant]
     Active Substance: ESZOPICLONE
     Indication: SLEEP DISORDER
     Route: 065

REACTIONS (5)
  - Poor quality sleep [Unknown]
  - Wrong technique in product usage process [Unknown]
  - Product use issue [Unknown]
  - Intentional product use issue [Unknown]
  - Drug ineffective [Unknown]

NARRATIVE: CASE EVENT DATE: 201608
